FAERS Safety Report 18180089 (Version 1)
Quarter: 2020Q3

REPORT INFORMATION
  Report Type: Spontaneous
  Country: GB (occurrence: GB)
  Receive Date: 20200821
  Receipt Date: 20200821
  Transmission Date: 20201103
  Serious: Yes (Life-Threatening, Hospitalization)
  Sender: FDA-Public Use
  Company Number: GB-PFIZER INC-2020323301

PATIENT
  Age: 56 Year
  Sex: Female
  Weight: 62 kg

DRUGS (6)
  1. CYCLOPHOSPHAMIDE. [Concomitant]
     Active Substance: CYCLOPHOSPHAMIDE
  2. FLUOROURACIL. [Concomitant]
     Active Substance: FLUOROURACIL
  3. DOCETAXEL. [Concomitant]
     Active Substance: DOCETAXEL
  4. PERTUZUMAB. [Concomitant]
     Active Substance: PERTUZUMAB
  5. EPIRUBICIN HYDROCHLORIDE. [Concomitant]
     Active Substance: EPIRUBICIN HYDROCHLORIDE
  6. TRASTUZUMAB. [Suspect]
     Active Substance: TRASTUZUMAB
     Indication: BREAST CANCER FEMALE
     Dosage: 504 MG, SINGLE
     Route: 042
     Dates: start: 20191011

REACTIONS (3)
  - Petechiae [Unknown]
  - Immune thrombocytopenia [Recovered/Resolved]
  - Ecchymosis [Unknown]

NARRATIVE: CASE EVENT DATE: 20191015
